FAERS Safety Report 15563121 (Version 1)
Quarter: 2018Q4

REPORT INFORMATION
  Report Type: Spontaneous
  Country: CA (occurrence: CA)
  Receive Date: 20181029
  Receipt Date: 20181029
  Transmission Date: 20190205
  Serious: Yes (Hospitalization)
  Sender: FDA-Public Use
  Company Number: CA-PERRIGO-18CA011428

PATIENT
  Age: 16 Year
  Sex: Female

DRUGS (6)
  1. ACETAMINOPHEN. [Suspect]
     Active Substance: ACETAMINOPHEN
     Indication: INTENTIONAL OVERDOSE
     Dosage: 162.5 G, SINGLE (325 TABLETS)
     Route: 048
  2. NAPROXEN SODIUM. [Suspect]
     Active Substance: NAPROXEN SODIUM
     Indication: INTENTIONAL OVERDOSE
     Dosage: 55 G, SINGLE (250 TABLETS)
     Route: 048
  3. PRAZOSIN. [Suspect]
     Active Substance: PRAZOSIN
     Indication: NIGHTMARE
     Dosage: 110 MG, SINGLE (55 TABLETS)
     Route: 048
  4. ACETAMINOPHEN. [Suspect]
     Active Substance: ACETAMINOPHEN
     Indication: INTENTIONAL OVERDOSE
     Dosage: 46.8 G, SINGLE (72 TABLETS)
     Route: 048
  5. PRAZOSIN. [Suspect]
     Active Substance: PRAZOSIN
     Indication: INSOMNIA
     Dosage: 2 MG, QHS
     Route: 048
  6. PRAZOSIN. [Suspect]
     Active Substance: PRAZOSIN
     Indication: INTENTIONAL OVERDOSE

REACTIONS (4)
  - Overdose [Recovered/Resolved]
  - Electrocardiogram QT prolonged [Recovered/Resolved]
  - Metabolic acidosis [Recovered/Resolved]
  - Hypotension [Recovered/Resolved]
